FAERS Safety Report 23334770 (Version 1)
Quarter: 2023Q4

REPORT INFORMATION
  Report Type: Spontaneous
  Country: DE (occurrence: DE)
  Receive Date: 20231224
  Receipt Date: 20231224
  Transmission Date: 20240109
  Serious: Yes (Other)
  Sender: FDA-Public Use
  Company Number: DE-DSJP-DSE-2023-151898

PATIENT
  Sex: Female

DRUGS (1)
  1. BEMPEDOIC ACID\EZETIMIBE [Suspect]
     Active Substance: BEMPEDOIC ACID\EZETIMIBE
     Indication: Product used for unknown indication
     Dosage: 1 DF, QD (180/10 MG DAILY)
     Route: 065

REACTIONS (1)
  - Oesophageal carcinoma [Unknown]
